FAERS Safety Report 18526239 (Version 1)
Quarter: 2020Q4

REPORT INFORMATION
  Report Type: Report from Study
  Country: US (occurrence: US)
  Receive Date: 20201120
  Receipt Date: 20201120
  Transmission Date: 20210114
  Serious: Yes (Other)
  Sender: FDA-Public Use
  Company Number: NVSC2020US301512

PATIENT
  Age: 19 Year
  Sex: Female

DRUGS (2)
  1. COSENTYX [Suspect]
     Active Substance: SECUKINUMAB
     Dosage: 150 MG, QW (WEEK 2)
     Route: 058
  2. COSENTYX [Suspect]
     Active Substance: SECUKINUMAB
     Indication: PSORIASIS
     Dosage: 150 MG, QW (WEEK 1)
     Route: 065
     Dates: start: 20200928

REACTIONS (5)
  - Lymphadenitis [Recovered/Resolved]
  - Sinusitis [Not Recovered/Not Resolved]
  - Incorrect dose administered [Unknown]
  - Staphylococcal infection [Recovered/Resolved]
  - Pruritus [Recovered/Resolved]

NARRATIVE: CASE EVENT DATE: 20200928
